FAERS Safety Report 13185360 (Version 3)
Quarter: 2017Q1

REPORT INFORMATION
  Report Type: Report from Study
  Country: NL (occurrence: NL)
  Receive Date: 20170203
  Receipt Date: 20170307
  Transmission Date: 20170428
  Serious: Yes (Hospitalization, Other)
  Sender: FDA-Public Use
  Company Number: NL-TEVA-736195ROM

PATIENT
  Sex: Female

DRUGS (3)
  1. NEBUSAL 7% NACL [Suspect]
     Active Substance: SODIUM CHLORIDE
     Indication: CHRONIC OBSTRUCTIVE PULMONARY DISEASE
     Dates: start: 20130827, end: 20170123
  2. PREDNISON [Suspect]
     Active Substance: PREDNISONE
  3. BUDESONIDE VERNEVELVLST 0,125MG/ML PATR 2ML [Suspect]
     Active Substance: BUDESONIDE
     Dosage: .5 MILLIGRAM DAILY;

REACTIONS (3)
  - Osteonecrosis [Unknown]
  - Influenza [Not Recovered/Not Resolved]
  - Product quality issue [Unknown]

NARRATIVE: CASE EVENT DATE: 2015
